FAERS Safety Report 7185356-1 (Version None)
Quarter: 2010Q4

REPORT INFORMATION
  Report Type: 
  Country: None (occurrence: None)
  Receive Date: 20101222
  Receipt Date: 20101214
  Transmission Date: 20110411
  Serious: Yes (Other)
  Sender: FDA-Public Use
  Company Number: GB-PFIZER INC-2010127828

PATIENT
  Age: 68 Year
  Sex: Female

DRUGS (1)
  1. LYRICA [Suspect]
     Indication: EPILEPSY
     Dosage: 325MG/DAY, 125MG IN MORNING AND 200MG AT NIGHT

REACTIONS (2)
  - DRUG DISPENSING ERROR [None]
  - UNDERDOSE [None]
